FAERS Safety Report 8103215-4 (Version None)
Quarter: 2012Q1

REPORT INFORMATION
  Report Type: 
  Country: None (occurrence: None)
  Receive Date: 20120201
  Receipt Date: 20120118
  Transmission Date: 20120608
  Serious: Yes (Death)
  Sender: FDA-Public Use
  Company Number: IT-MYLANLABS-2012S1001571

PATIENT
  Age: 63 Year
  Sex: Male

DRUGS (3)
  1. DACTINOMYCIN [Suspect]
     Indication: MALIGNANT MELANOMA
     Dosage: 0.1 MG/L (UP TO MAXIMUM DOSE OF 1 MG)
  2. MELPHALAN HYDROCHLORIDE [Suspect]
     Indication: MALIGNANT MELANOMA
     Dosage: MELPHALAN 10 MG/L
  3. MELPHALAN HYDROCHLORIDE [Suspect]
     Dosage: MELPHALAN BOLUS 5 MG/L

REACTIONS (4)
  - SEPTIC SHOCK [None]
  - BONE MARROW TOXICITY [None]
  - LOCAL REACTION [None]
  - MULTI-ORGAN FAILURE [None]
